FAERS Safety Report 23106946 (Version 4)
Quarter: 2023Q4

REPORT INFORMATION
  Report Type: Spontaneous
  Country: JP (occurrence: JP)
  Receive Date: 20231026
  Receipt Date: 20231222
  Transmission Date: 20240109
  Serious: Yes (Death, Hospitalization, Other)
  Sender: FDA-Public Use
  Company Number: JP-GSK-JP2023JPN146775

PATIENT

DRUGS (10)
  1. NUCALA [Suspect]
     Active Substance: MEPOLIZUMAB
     Indication: Eosinophilic granulomatosis with polyangiitis
     Dosage: 300 MG, Q4W
     Route: 058
     Dates: start: 20200229, end: 20210213
  2. NUCALA [Suspect]
     Active Substance: MEPOLIZUMAB
     Dosage: 300 MG, Q4W
     Route: 058
     Dates: start: 20220129, end: 20230927
  3. CYCLOPHOSPHAMIDE [Concomitant]
     Active Substance: CYCLOPHOSPHAMIDE
     Dosage: 500 MG
     Dates: start: 20210330, end: 202201
  4. PREDONINE [Concomitant]
     Active Substance: PREDNISOLONE
     Dosage: 60 MG
     Route: 048
     Dates: start: 20180222
  5. PREDONINE [Concomitant]
     Active Substance: PREDNISOLONE
     Dosage: 6 MG
     Route: 048
  6. PREDONINE [Concomitant]
     Active Substance: PREDNISOLONE
     Dosage: 30 MG
     Route: 048
     Dates: start: 20210322
  7. PREDONINE [Concomitant]
     Active Substance: PREDNISOLONE
     Dosage: 12.5 MG
     Route: 048
  8. PREDONINE [Concomitant]
     Active Substance: PREDNISOLONE
     Dosage: 7 MG
     Route: 048
     Dates: start: 20220912, end: 20231007
  9. IMURAN [Concomitant]
     Active Substance: AZATHIOPRINE
     Dosage: 50 MG
     Route: 048
     Dates: start: 20200209, end: 20210322
  10. IMURAN [Concomitant]
     Active Substance: AZATHIOPRINE
     Dosage: 50 MG
     Route: 048
     Dates: start: 20220129, end: 20231007

REACTIONS (17)
  - Aspiration [Fatal]
  - Vomiting [Fatal]
  - Respiratory failure [Fatal]
  - Eosinophilic granulomatosis with polyangiitis [Fatal]
  - Condition aggravated [Fatal]
  - Feeding disorder [Unknown]
  - Eosinophil count decreased [Unknown]
  - Sinusitis [Unknown]
  - Disorder of orbit [Unknown]
  - Hypoaesthesia [Unknown]
  - Cognitive disorder [Unknown]
  - Performance status decreased [Unknown]
  - Dysphagia [Unknown]
  - Decreased appetite [Unknown]
  - Weight decreased [Unknown]
  - Hypophagia [Unknown]
  - Bedridden [Unknown]

NARRATIVE: CASE EVENT DATE: 20230901
